FAERS Safety Report 15952088 (Version 2)
Quarter: 2019Q3

REPORT INFORMATION
  Report Type: Report from Study
  Country: US (occurrence: US)
  Receive Date: 20190212
  Receipt Date: 20190812
  Transmission Date: 20191004
  Serious: Yes (Hospitalization, Other)
  Sender: FDA-Public Use
  Company Number: US-ALEXION PHARMACEUTICALS INC.-A201901850

PATIENT
  Sex: Female

DRUGS (2)
  1. SOLIRIS [Suspect]
     Active Substance: ECULIZUMAB
     Indication: PAROXYSMAL NOCTURNAL HAEMOGLOBINURIA
     Dosage: UNK
     Route: 065
  2. SOLIRIS [Suspect]
     Active Substance: ECULIZUMAB
     Dosage: UNK
     Route: 042

REACTIONS (21)
  - Mass [Unknown]
  - Headache [Recovered/Resolved]
  - Arthralgia [Unknown]
  - Loss of consciousness [Unknown]
  - Occipital neuralgia [Unknown]
  - White blood cell count decreased [Unknown]
  - Intervertebral disc degeneration [Unknown]
  - Diarrhoea [Unknown]
  - Eosinophil count decreased [Unknown]
  - Blood alkaline phosphatase increased [Unknown]
  - Vertebral foraminal stenosis [Unknown]
  - Hepatitis B core antibody positive [Unknown]
  - Dizziness [Recovered/Resolved]
  - Melaena [Unknown]
  - Chest pain [Unknown]
  - Platelet count decreased [Unknown]
  - Mean platelet volume increased [Unknown]
  - Reticulocyte percentage increased [Unknown]
  - Chills [Unknown]
  - Abdominal pain [Unknown]
  - Abdominal pain upper [Unknown]

NARRATIVE: CASE EVENT DATE: 20110201
